FAERS Safety Report 5733063-1 (Version None)
Quarter: 2008Q2

REPORT INFORMATION
  Report Type: 
  Country: None (occurrence: None)
  Receive Date: 20080509
  Receipt Date: 20080429
  Transmission Date: 20081010
  Serious: Yes (Other)
  Sender: FDA-Public Use
  Company Number: DE-JNJFOC-20080403912

PATIENT
  Age: 25 Year
  Sex: Female
  Weight: 30.39 kg

DRUGS (10)
  1. REMICADE [Suspect]
     Route: 042
  2. REMICADE [Suspect]
     Route: 042
  3. REMICADE [Suspect]
     Indication: CROHN'S DISEASE
     Route: 042
  4. METHYLPREDNISOLONE [Concomitant]
  5. AZATHIOPRINE [Concomitant]
  6. L-THYROXIN [Concomitant]
  7. CALCILAC [Concomitant]
  8. MAGNESIUM [Concomitant]
  9. OMEPRAZOLE [Concomitant]
  10. VALETTE [Concomitant]

REACTIONS (3)
  - BLOOD CHOLESTEROL INCREASED [None]
  - BLOOD TRIGLYCERIDES INCREASED [None]
  - HYPERSENSITIVITY [None]
